FAERS Safety Report 5705866-0 (Version None)
Quarter: 2008Q2

REPORT INFORMATION
  Report Type: 
  Country: None (occurrence: None)
  Receive Date: 20080415
  Receipt Date: 20080409
  Transmission Date: 20081010
  Serious: Yes (Hospitalization, Other)
  Sender: FDA-Public Use
  Company Number: US-MERCK-0502USA00754

PATIENT
  Age: 67 Year
  Sex: Female

DRUGS (3)
  1. FOSAMAX [Suspect]
     Indication: OSTEOPOROSIS
     Route: 048
     Dates: start: 20020101, end: 20030101
  2. CORTICOSTEROIDS (UNSPECIFIED) [Concomitant]
     Route: 065
     Dates: start: 19800101, end: 20070201
  3. HORMONES (UNSPECIFIED) [Concomitant]
     Route: 065
     Dates: start: 19650101

REACTIONS (22)
  - ARTHRITIS [None]
  - ASTHMA [None]
  - BACK DISORDER [None]
  - BACK PAIN [None]
  - CELLULITIS [None]
  - CEREBROVASCULAR DISORDER [None]
  - COUGH [None]
  - DELIRIUM [None]
  - DENTAL NECROSIS [None]
  - DIARRHOEA [None]
  - EMOTIONAL DISTRESS [None]
  - IRRITABLE BOWEL SYNDROME [None]
  - OESOPHAGITIS [None]
  - OSTEOMYELITIS [None]
  - OSTEONECROSIS [None]
  - SPINAL COLUMN STENOSIS [None]
  - SPONDYLOLISTHESIS [None]
  - STREPTOCOCCAL ABSCESS [None]
  - SYNCOPE [None]
  - TOOTH ABSCESS [None]
  - TRANSIENT ISCHAEMIC ATTACK [None]
  - URINARY TRACT INFECTION [None]
